FAERS Safety Report 4305946-0 (Version None)
Quarter: 2004Q1

REPORT INFORMATION
  Report Type: 
  Country: None (occurrence: None)
  Receive Date: 20040225
  Receipt Date: 20040216
  Transmission Date: 20041129
  Serious: No
  Sender: FDA-Public Use
  Company Number: 2004GB00409

PATIENT
  Age: 64 Year
  Sex: Female

DRUGS (8)
  1. CRESTOR [Suspect]
     Indication: DIABETES MELLITUS
     Dosage: 40 MG DAILY PO
     Route: 048
     Dates: start: 20030901, end: 20040101
  2. CRESTOR [Suspect]
     Indication: HYPERCHOLESTEROLAEMIA
     Dosage: 40 MG DAILY PO
     Route: 048
     Dates: start: 20030901, end: 20040101
  3. RAMIPRIL [Suspect]
     Dates: start: 20001103
  4. BENDROFLUAZIDE [Concomitant]
  5. BISOPROLOL [Concomitant]
  6. DILTIAZEM [Concomitant]
  7. ASPIRIN [Concomitant]
  8. OMEPRAZOLE [Concomitant]

REACTIONS (4)
  - DEHYDRATION [None]
  - MYOGLOBINURIA [None]
  - MYOSITIS [None]
  - RENAL FAILURE ACUTE [None]
